FAERS Safety Report 8966500 (Version 3)
Quarter: 2013Q3

REPORT INFORMATION
  Report Type: Spontaneous
  Country: US (occurrence: US)
  Receive Date: 20121217
  Receipt Date: 20130925
  Transmission Date: 20140515
  Serious: Yes (Hospitalization, Other)
  Sender: FDA-Public Use
  Company Number: US-BAYER-2012-114096

PATIENT
  Age: 23 Year
  Sex: Female
  Weight: 89.34 kg

DRUGS (13)
  1. YASMIN [Suspect]
     Indication: CONTRACEPTION
     Dosage: UNK
     Dates: start: 20070601, end: 20111111
  2. IBUPROFENE [Concomitant]
     Dosage: UNK UNK, PRN
  3. EXTRA STRENGTH TYLENOL [Concomitant]
     Indication: HEADACHE
     Dosage: UNK
     Dates: start: 2001
  4. ARMOUR THYROID [Concomitant]
     Dosage: UNK
     Dates: start: 201107, end: 201111
  5. MELOXICAM [Concomitant]
     Dosage: UNK
     Dates: start: 201107, end: 201111
  6. PROAIR HFA [Concomitant]
     Dosage: UNK
     Route: 045
     Dates: start: 201107
  7. OMEPRAZOLE [Concomitant]
     Dosage: 20 MG, UNK
     Dates: start: 201107
  8. OMEPRAZOLE [Concomitant]
     Dosage: UNK
     Dates: start: 20111115
  9. OMEGA 3 [Concomitant]
     Dosage: UNK;DAILY
     Dates: start: 201107
  10. CYCLOBENZAPRINE [Concomitant]
     Dosage: UNK
     Dates: start: 201107
  11. ONE A DAY [Concomitant]
     Indication: VITAMIN SUPPLEMENTATION
     Dosage: UNK UNK, QD
  12. INDOCIN [Concomitant]
     Dosage: UNK
     Dates: start: 20111115
  13. PRILOSEC [Concomitant]
     Dosage: UNK
     Dates: start: 20111115

REACTIONS (8)
  - Cerebrovascular accident [None]
  - Cerebral thrombosis [None]
  - Injury [None]
  - General physical health deterioration [None]
  - Emotional distress [None]
  - Anhedonia [None]
  - Anxiety [None]
  - Pain [None]
